FAERS Safety Report 8213314-4 (Version None)
Quarter: 2012Q1

REPORT INFORMATION
  Report Type: 
  Country: None (occurrence: None)
  Receive Date: 20120315
  Receipt Date: 20120307
  Transmission Date: 20120608
  Serious: Yes (Other)
  Sender: FDA-Public Use
  Company Number: PHHY2011CO115178

PATIENT
  Age: 73 Year
  Sex: Male

DRUGS (3)
  1. STALEVO 100 [Suspect]
     Dosage: UNK UKN, UNK
  2. STALEVO 100 [Suspect]
     Indication: PARKINSON'S DISEASE
     Dosage: 50/12.5/200 MG FOUR TIMES PER DAY
     Route: 048
     Dates: start: 20080101
  3. STALEVO 100 [Suspect]
     Dosage: 50/12.5/200 MG THREE TIMES PER DAY
     Route: 048

REACTIONS (9)
  - INCORRECT DOSE ADMINISTERED [None]
  - THYROID DISORDER [None]
  - DYSKINESIA [None]
  - DEPRESSION [None]
  - NAUSEA [None]
  - TREMOR [None]
  - DIZZINESS [None]
  - CONSTIPATION [None]
  - MUSCLE RIGIDITY [None]
